FAERS Safety Report 8122509-X (Version None)
Quarter: 2012Q1

REPORT INFORMATION
  Report Type: 
  Country: None (occurrence: None)
  Receive Date: 20120207
  Receipt Date: 20120207
  Transmission Date: 20120608
  Serious: Yes (Hospitalization)
  Sender: FDA-Public Use
  Company Number: None

PATIENT
  Age: 6 Year
  Sex: Female
  Weight: 29.8 kg

DRUGS (1)
  1. KEPPRA [Suspect]
     Indication: CONVULSION
     Dosage: 300 MG TWICE DAILY ORALLY
     Route: 048
     Dates: start: 20120127, end: 20120129

REACTIONS (3)
  - SCRATCH [None]
  - ABNORMAL BEHAVIOUR [None]
  - AGGRESSION [None]
